FAERS Safety Report 4502117-X (Version None)
Quarter: 2004Q4

REPORT INFORMATION
  Report Type: 
  Country: None (occurrence: None)
  Receive Date: 20041116
  Receipt Date: 20041109
  Transmission Date: 20050328
  Serious: Yes (Life-Threatening, Disabling)
  Sender: FDA-Public Use
  Company Number: US-MERCK-0411USA01676

PATIENT
  Age: 57 Year
  Sex: Female

DRUGS (4)
  1. VIOXX [Suspect]
     Indication: POST PROCEDURAL PAIN
     Route: 048
     Dates: start: 20040801, end: 20040930
  2. VIOXX [Suspect]
     Indication: ARTHRITIS
     Route: 048
     Dates: start: 20040801, end: 20040930
  3. CATAPRES [Concomitant]
     Route: 065
  4. GLUCOTROL XL [Concomitant]
     Route: 065

REACTIONS (5)
  - ASTHENIA [None]
  - CHEST PAIN [None]
  - HEART RATE INCREASED [None]
  - PAIN IN EXTREMITY [None]
  - VOMITING [None]
